FAERS Safety Report 5261705-6 (Version None)
Quarter: 2007Q1

REPORT INFORMATION
  Report Type: 
  Country: None (occurrence: None)
  Receive Date: 20061208
  Receipt Date: 20060518
  Transmission Date: 20070707
  Serious: Yes (Other)
  Sender: FDA-Public Use
  Company Number: USA-2006-0024262

PATIENT
  Age: 35 Year
  Sex: Female

DRUGS (5)
  1. OXYCONTIN [Suspect]
     Indication: NECK PAIN
     Dosage: 20 MG, BID
     Dates: start: 20060502
  2. MS CONTIN [Concomitant]
  3. PERCOCET [Concomitant]
  4. CLONAZEPAM [Concomitant]
  5. BUSPAR [Concomitant]

REACTIONS (1)
  - DRUG ABUSER [None]
